FAERS Safety Report 9814668 (Version 3)
Quarter: 2014Q1

REPORT INFORMATION
  Report Type: Spontaneous
  Country: US (occurrence: US)
  Receive Date: 20140113
  Receipt Date: 20140226
  Transmission Date: 20141002
  Serious: Yes (Other)
  Sender: FDA-Public Use
  Company Number: CHPA2014US000548

PATIENT
  Age: 79 Year
  Sex: Female

DRUGS (3)
  1. VOLTAREN GEL [Suspect]
     Indication: OSTEOARTHRITIS
     Dosage: UNK
     Route: 061
  2. VOLTAREN GEL [Suspect]
     Indication: ROTATOR CUFF SYNDROME
  3. VOLTAREN GEL [Suspect]
     Indication: OFF LABEL USE

REACTIONS (6)
  - Rotator cuff syndrome [Unknown]
  - Fall [Unknown]
  - Angiopathy [Recovered/Resolved]
  - Erythema [Recovered/Resolved]
  - Inappropriate schedule of drug administration [Unknown]
  - Drug administered at inappropriate site [Unknown]
